FAERS Safety Report 6569210-1 (Version None)
Quarter: 2010Q2

REPORT INFORMATION
  Report Type: 
  Country: None (occurrence: None)
  Receive Date: 20100201
  Receipt Date: 20100201
  Transmission Date: 20101027
  Serious: Yes (Other)
  Sender: FDA-Public Use
  Company Number: None

PATIENT
  Age: 22 Year
  Sex: Female
  Weight: 65.7716 kg

DRUGS (2)
  1. JUNIOR STRENGTH MOTRIN [Suspect]
     Indication: DYSMENORRHOEA
     Dosage: 2 -200MG- ONE DOSE PER WEEK PO
     Route: 048
     Dates: start: 20091114, end: 20100120
  2. JUNIOR STRENGTH MOTRIN [Suspect]
     Indication: HEADACHE
     Dosage: 2 -200MG- ONE DOSE PER WEEK PO
     Route: 048
     Dates: start: 20091114, end: 20100120

REACTIONS (4)
  - ABDOMINAL PAIN UPPER [None]
  - FLUID INTAKE REDUCED [None]
  - HYPOPHAGIA [None]
  - NAUSEA [None]
